FAERS Safety Report 4471189-3 (Version None)
Quarter: 2004Q4

REPORT INFORMATION
  Report Type: 
  Country: None (occurrence: None)
  Receive Date: 20041011
  Receipt Date: 20020516
  Transmission Date: 20050328
  Serious: Yes (Hospitalization, Disabling)
  Sender: FDA-Public Use
  Company Number: US-MERCK-0205USA02064

PATIENT
  Age: 36 Year
  Sex: Male
  Weight: 70 kg

DRUGS (1)
  1. VIOXX [Suspect]
     Route: 048
     Dates: start: 20000401, end: 20000101

REACTIONS (27)
  - ANXIETY [None]
  - ARTHRALGIA [None]
  - ASPERGILLOSIS [None]
  - BRONCHITIS [None]
  - CEREBROVASCULAR ACCIDENT [None]
  - COMPLICATED MIGRAINE [None]
  - DRUG DEPENDENCE [None]
  - DRUG INEFFECTIVE [None]
  - HYPERCHOLESTEROLAEMIA [None]
  - HYPERTRIGLYCERIDAEMIA [None]
  - HYPOTENSION [None]
  - IRIS DISORDER [None]
  - MAJOR DEPRESSION [None]
  - MIGRAINE [None]
  - MIGRAINE WITH AURA [None]
  - MUSCLE SPASMS [None]
  - NEUROPATHIC PAIN [None]
  - NIGHT SWEATS [None]
  - NYSTAGMUS [None]
  - OESOPHAGEAL SPASM [None]
  - PIGMENTED NAEVUS [None]
  - ROAD TRAFFIC ACCIDENT [None]
  - SKELETAL INJURY [None]
  - SKIN HYPOPIGMENTATION [None]
  - SKIN LACERATION [None]
  - SYNCOPE [None]
  - TREMOR [None]
